FAERS Safety Report 10176271 (Version 1)
Quarter: 2014Q2

REPORT INFORMATION
  Report Type: Spontaneous
  Country: US (occurrence: US)
  Receive Date: 20140516
  Receipt Date: 20140516
  Transmission Date: 20141212
  Serious: No
  Sender: FDA-Public Use
  Company Number: US-PFIZER INC-2014134317

PATIENT
  Age: 84 Year
  Sex: Female
  Weight: 54.42 kg

DRUGS (1)
  1. CELEBREX [Suspect]
     Indication: MUSCLE RELAXANT THERAPY
     Dosage: 200 MG, ALTERNATE DAY (ONE CAPSULE EVERY OTHER DAY)
     Route: 048
     Dates: start: 20140509

REACTIONS (2)
  - Off label use [Unknown]
  - Diarrhoea [Unknown]
